FAERS Safety Report 7816418-0 (Version None)
Quarter: 2011Q4

REPORT INFORMATION
  Report Type: 
  Country: None (occurrence: None)
  Receive Date: 20111017
  Receipt Date: 20111012
  Transmission Date: 20120403
  Serious: Yes (Hospitalization)
  Sender: FDA-Public Use
  Company Number: US-BRISTOL-MYERS SQUIBB COMPANY-13919519

PATIENT
  Age: 47 Year
  Sex: Male
  Weight: 98 kg

DRUGS (3)
  1. CISPLATIN [Suspect]
     Indication: HEAD AND NECK CANCER
     Dates: start: 20070917, end: 20070917
  2. ERBITUX [Suspect]
     Indication: HEAD AND NECK CANCER
     Dates: start: 20070917, end: 20070917
  3. DEXAMETHASONE [Concomitant]

REACTIONS (7)
  - VOMITING [None]
  - NAUSEA [None]
  - HYPOKALAEMIA [None]
  - PHARYNGEAL FISTULA [None]
  - WHITE BLOOD CELL COUNT DECREASED [None]
  - NEUTROPHIL COUNT DECREASED [None]
  - FEBRILE NEUTROPENIA [None]
